FAERS Safety Report 7858298 (Version 6)
Quarter: 2013Q4

REPORT INFORMATION
  Report Type: Report from Study
  Country: FR (occurrence: FR)
  Receive Date: 20110316
  Receipt Date: 20131108
  Transmission Date: 20140711
  Serious: Yes (Death, Hospitalization, Other)
  Sender: FDA-Public Use
  Company Number: FR-ROCHE-764823

PATIENT
  Age: 54 Year
  Sex: Male
  Weight: 90 kg

DRUGS (7)
  1. BEVACIZUMAB [Suspect]
     Indication: BRONCHIAL CARCINOMA
     Route: 065
  2. ALIMTA [Suspect]
     Indication: BRONCHIAL CARCINOMA
     Route: 042
     Dates: start: 20110225, end: 20110408
  3. SPECIAFOLDINE [Concomitant]
     Indication: PREMEDICATION
     Route: 048
     Dates: start: 20101105, end: 20110408
  4. MOSCONTIN [Concomitant]
     Indication: ANALGESIC THERAPY
     Route: 048
  5. CORTANCYL [Concomitant]
     Indication: PAIN
     Route: 048
     Dates: start: 20101126, end: 20110408
  6. DAFALGAN [Concomitant]
     Indication: PAIN
     Route: 048
     Dates: start: 20101126, end: 20110408
  7. SERESTA [Concomitant]
     Dosage: DOSE 10
     Route: 048
     Dates: start: 20101126, end: 20110408

REACTIONS (3)
  - Ischaemic stroke [Fatal]
  - Deep vein thrombosis [Recovered/Resolved with Sequelae]
  - Aneurysm [Recovered/Resolved]
